FAERS Safety Report 21190786 (Version 1)
Quarter: 2022Q3

REPORT INFORMATION
  Report Type: Spontaneous
  Country: US (occurrence: US)
  Receive Date: 20220809
  Receipt Date: 20220809
  Transmission Date: 20221027
  Serious: Yes (Other)
  Sender: FDA-Public Use
  Company Number: US-SA-SAC20220805001351

PATIENT
  Age: 36 Year
  Sex: Male

DRUGS (3)
  1. ZANTAC [Suspect]
     Active Substance: RANITIDINE HYDROCHLORIDE
     Indication: Intestinal ulcer
     Dosage: 75 MG FREQUENCY :OTHER
     Dates: start: 199401
  2. ZANTAC [Suspect]
     Active Substance: RANITIDINE HYDROCHLORIDE
     Dosage: 150 MG FREQUENCY :OTHER
  3. ZANTAC [Suspect]
     Active Substance: RANITIDINE HYDROCHLORIDE
     Dosage: OTHER FREQUENCY :OTHER
     Dates: end: 201901

REACTIONS (1)
  - Testis cancer [Unknown]

NARRATIVE: CASE EVENT DATE: 20111003
